FAERS Safety Report 22603779 (Version 26)
Quarter: 2025Q3

REPORT INFORMATION
  Report Type: Spontaneous
  Country: CA (occurrence: CA)
  Receive Date: 20230615
  Receipt Date: 20250904
  Transmission Date: 20251020
  Serious: Yes (Hospitalization, Other)
  Sender: CELLTRION
  Company Number: CA-CELLTRION INC.-2023CA009798

PATIENT

DRUGS (51)
  1. INFLECTRA [Suspect]
     Active Substance: INFLIXIMAB-DYYB
     Indication: Colitis ulcerative
     Dates: start: 20230504, end: 20230519
  2. INFLECTRA [Suspect]
     Active Substance: INFLIXIMAB-DYYB
     Dates: start: 20230607, end: 20230607
  3. INFLECTRA [Suspect]
     Active Substance: INFLIXIMAB-DYYB
     Dates: start: 20230607, end: 20230607
  4. INFLECTRA [Suspect]
     Active Substance: INFLIXIMAB-DYYB
     Dates: start: 20230712
  5. INFLECTRA [Suspect]
     Active Substance: INFLIXIMAB-DYYB
     Dates: start: 20230712
  6. INFLECTRA [Suspect]
     Active Substance: INFLIXIMAB-DYYB
     Dates: start: 20230809
  7. INFLECTRA [Suspect]
     Active Substance: INFLIXIMAB-DYYB
     Dates: start: 20230906
  8. INFLECTRA [Suspect]
     Active Substance: INFLIXIMAB-DYYB
     Dates: start: 20231004
  9. INFLECTRA [Suspect]
     Active Substance: INFLIXIMAB-DYYB
     Dates: start: 20231129
  10. INFLECTRA [Suspect]
     Active Substance: INFLIXIMAB-DYYB
     Dates: start: 20231229
  11. INFLECTRA [Suspect]
     Active Substance: INFLIXIMAB-DYYB
     Dates: start: 20240221
  12. INFLECTRA [Suspect]
     Active Substance: INFLIXIMAB-DYYB
     Dates: start: 20240405
  13. INFLECTRA [Suspect]
     Active Substance: INFLIXIMAB-DYYB
     Dates: start: 20240517
  14. INFLECTRA [Suspect]
     Active Substance: INFLIXIMAB-DYYB
     Dates: start: 20240628
  15. INFLECTRA [Suspect]
     Active Substance: INFLIXIMAB-DYYB
     Dates: start: 20240807, end: 20240807
  16. INFLECTRA [Suspect]
     Active Substance: INFLIXIMAB-DYYB
     Dates: start: 20240919
  17. INFLECTRA [Suspect]
     Active Substance: INFLIXIMAB-DYYB
     Dates: start: 20241031
  18. INFLECTRA [Suspect]
     Active Substance: INFLIXIMAB-DYYB
     Dates: start: 20241212
  19. INFLECTRA [Suspect]
     Active Substance: INFLIXIMAB-DYYB
     Dates: start: 20250123
  20. INFLECTRA [Suspect]
     Active Substance: INFLIXIMAB-DYYB
     Dates: start: 20250312
  21. INFLECTRA [Suspect]
     Active Substance: INFLIXIMAB-DYYB
     Dates: start: 20250409
  22. INFLECTRA [Suspect]
     Active Substance: INFLIXIMAB-DYYB
     Dates: start: 20250507
  23. INFLECTRA [Suspect]
     Active Substance: INFLIXIMAB-DYYB
     Dates: start: 20250604
  24. INFLECTRA [Suspect]
     Active Substance: INFLIXIMAB-DYYB
     Dates: start: 20250702
  25. INFLECTRA [Suspect]
     Active Substance: INFLIXIMAB-DYYB
     Dates: start: 20250730
  26. INFLECTRA [Suspect]
     Active Substance: INFLIXIMAB-DYYB
     Dates: start: 20250827
  27. ACETAMINOPHEN [Concomitant]
     Active Substance: ACETAMINOPHEN
     Indication: Premedication
     Dates: start: 20240807, end: 20240807
  28. AMPHETAMINE [Concomitant]
     Active Substance: AMPHETAMINE
  29. ETHINYL ESTRADIOL\LEVONORGESTREL [Concomitant]
     Active Substance: ETHINYL ESTRADIOL\LEVONORGESTREL
  30. BENZTROPINE MESYLATE [Concomitant]
     Active Substance: BENZTROPINE MESYLATE
  31. BUPROPION [Concomitant]
     Active Substance: BUPROPION
  32. DIPHENHYDRAMINE [Concomitant]
     Active Substance: DIPHENHYDRAMINE
     Indication: Premedication
     Dates: start: 20230712, end: 20230712
  33. DIPHENHYDRAMINE [Concomitant]
     Active Substance: DIPHENHYDRAMINE
     Dates: start: 20240807, end: 20240807
  34. DOMPERIDONE [Concomitant]
     Active Substance: DOMPERIDONE
  35. ENTYVIO [Concomitant]
     Active Substance: VEDOLIZUMAB
  36. FLUVOXAMINE [Concomitant]
     Active Substance: FLUVOXAMINE
  37. GABAPENTIN [Concomitant]
     Active Substance: GABAPENTIN
  38. HYDROCORTISONE [Concomitant]
     Active Substance: HYDROCORTISONE
     Indication: Premedication
     Dates: start: 20240807, end: 20240807
  39. LITHIUM [Concomitant]
     Active Substance: LITHIUM
  40. LORAZEPAM [Concomitant]
     Active Substance: LORAZEPAM
  41. NOVORAPID [Concomitant]
     Active Substance: INSULIN ASPART
  42. PANTOPRAZOLE SODIUM [Concomitant]
     Active Substance: PANTOPRAZOLE SODIUM
  43. PREDNISONE [Concomitant]
     Active Substance: PREDNISONE
  44. QUETIAPINE [Concomitant]
     Active Substance: QUETIAPINE
  45. RISPERIDONE [Concomitant]
     Active Substance: RISPERIDONE
  46. SULFASALAZINE [Concomitant]
     Active Substance: SULFASALAZINE
  47. TRESIBA [Concomitant]
     Active Substance: INSULIN DEGLUDEC
  48. TURBOCORT [Concomitant]
     Route: 055
  49. XOLAIR [Concomitant]
     Active Substance: OMALIZUMAB
  50. BENZTROPINE [Concomitant]
     Active Substance: BENZTROPINE
  51. TURBO [TERBINAFINE HYDROCHLORIDE] [Concomitant]
     Route: 055

REACTIONS (22)
  - Mental disorder [Recovered/Resolved]
  - Condition aggravated [Recovering/Resolving]
  - Weight increased [Unknown]
  - Intestinal dilatation [Unknown]
  - Dizziness [Recovered/Resolved]
  - Pruritus [Recovered/Resolved]
  - Nausea [Recovered/Resolved]
  - Constipation [Not Recovered/Not Resolved]
  - Therapeutic response shortened [Unknown]
  - Drug level increased [Unknown]
  - Crying [Recovered/Resolved]
  - Anxiety [Recovered/Resolved]
  - Weight decreased [Unknown]
  - Infusion site pain [Recovered/Resolved]
  - Injection site discomfort [Recovered/Resolved]
  - Abnormal faeces [Unknown]
  - Abdominal distension [Recovered/Resolved]
  - Rash [Recovered/Resolved]
  - Arthralgia [Not Recovered/Not Resolved]
  - Flushing [Recovered/Resolved]
  - Erythema [Recovered/Resolved]
  - Off label use [Unknown]

NARRATIVE: CASE EVENT DATE: 20230101
